FAERS Safety Report 25174507 (Version 1)
Quarter: 2025Q2

REPORT INFORMATION
  Report Type: Spontaneous
  Country: FR (occurrence: FR)
  Receive Date: 20250408
  Receipt Date: 20250408
  Transmission Date: 20250716
  Serious: Yes (Other)
  Sender: TEVA
  Company Number: None

PATIENT
  Age: 86 Year
  Sex: Male

DRUGS (2)
  1. LEVOFLOXACIN [Suspect]
     Active Substance: LEVOFLOXACIN
     Indication: Endocarditis
     Dosage: LEVOFLOXACINE
     Route: 048
     Dates: start: 20250224, end: 20250308
  2. LINEZOLID [Suspect]
     Active Substance: LINEZOLID
     Indication: Endocarditis
     Route: 048
     Dates: start: 20250228, end: 20250308

REACTIONS (1)
  - Thrombocytopenia [Recovered/Resolved]

NARRATIVE: CASE EVENT DATE: 20250305
